FAERS Safety Report 9240877 (Version 1)
Quarter: 2013Q1

REPORT INFORMATION
  Report Type: Spontaneous
  Country: US (occurrence: None)
  Receive Date: 20121120
  Receipt Date: 20121120
  Transmission Date: 20140127
  Serious: No
  Sender: FDA-Public Use
  Company Number: 1000037535

PATIENT
  Age: 48 Year
  Sex: Female

DRUGS (6)
  1. VIIBRYD [Suspect]
     Indication: DEPRESSION
     Route: 048
     Dates: start: 20120509, end: 20120726
  2. TRAZODONE (TRAZODONE) [Suspect]
     Indication: INSOMNIA
  3. SYMBICORT (BUDESONIDE W/FORMOTEROL FUMARATE) (BUDESONIDE W/FORMOTEROL FUMARATE) [Concomitant]
  4. FLONASE (FLUTICASONE PROPIONATE) (FLUTICASONE PROPIONATE) [Concomitant]
  5. COREG (CARVEDILOL) (CARVEDILOL) [Concomitant]
  6. CLARITIN-D (NARINE) [Concomitant]

REACTIONS (3)
  - Fatigue [None]
  - Abnormal dreams [None]
  - Drug interaction [None]
